FAERS Safety Report 20038316 (Version 2)
Quarter: 2022Q4

REPORT INFORMATION
  Report Type: Spontaneous
  Country: DE (occurrence: DE)
  Receive Date: 20211105
  Receipt Date: 20221216
  Transmission Date: 20230112
  Serious: Yes (Hospitalization, Other)
  Sender: FDA-Public Use
  Company Number: DE-ADRED-06823-01

PATIENT
  Age: 77 Year
  Sex: Female
  Weight: 72 kg

DRUGS (9)
  1. RAMIPRIL [Suspect]
     Active Substance: RAMIPRIL
     Indication: Product used for unknown indication
     Dosage: 10 MILLIGRAM, (10 MG, 1-0-0-0, TABLET)
     Route: 048
  2. ATORVASTATIN [Suspect]
     Active Substance: ATORVASTATIN
     Indication: Product used for unknown indication
     Dosage: 40 MILLIGRAM, (40 MG, 0-0-1-0, TABLET)
     Route: 048
  3. ALLOPURINOL [Suspect]
     Active Substance: ALLOPURINOL
     Indication: Product used for unknown indication
     Dosage: 300 MILLIGRAM (300 MG, 0-0-0.5-0, TABLET)
     Route: 048
  4. HYDROCHLOROTHIAZIDE [Suspect]
     Active Substance: HYDROCHLOROTHIAZIDE
     Indication: Product used for unknown indication
     Dosage: 25 MILLIGRAM, (25 MG, 1-0-0-0, TABLET)
     Route: 048
  5. AMLODIPINE BESYLATE [Concomitant]
     Active Substance: AMLODIPINE BESYLATE
     Dosage: 7.5 MILLIGRAM, 7.5 MG, 1-0-0-0, TABLET)
     Route: 048
  6. ASPIRIN [Concomitant]
     Active Substance: ASPIRIN
     Dosage: 100 MILLIGRAM, (100 MG, 0-1-0-0, RETARD-TABLET)
     Route: 048
  7. POTASSIUM IODIDE [Concomitant]
     Active Substance: POTASSIUM IODIDE
     Dosage: 130.8 MICROGRAM, (130.8 MCG, 1-0-0-0, TABLET)
     Route: 048
  8. BISOPROLOL [Concomitant]
     Active Substance: BISOPROLOL
     Dosage: 10 MILLIGRAM, 0-0-0.5-0, TABLET
     Route: 048
  9. FOSTER [Concomitant]
     Active Substance: BECLOMETHASONE\FORMOTEROL
     Dosage: UNK, 200|6 ?G, 2-0-2-0, METERED DOSE INHALER

REACTIONS (3)
  - Hypokalaemia [Unknown]
  - Acute kidney injury [Unknown]
  - Dyspnoea [Unknown]

NARRATIVE: CASE EVENT DATE: 20201116
